FAERS Safety Report 13930268 (Version 1)
Quarter: 2017Q3

REPORT INFORMATION
  Report Type: Spontaneous
  Country: CZ (occurrence: CZ)
  Receive Date: 20170901
  Receipt Date: 20170901
  Transmission Date: 20171127
  Serious: Yes (Hospitalization)
  Sender: FDA-Public Use
  Company Number: CZ-TAKEDA-2017TEU003669

PATIENT
  Age: 66 Year
  Sex: Female

DRUGS (8)
  1. INSULIN [Suspect]
     Active Substance: INSULIN NOS
     Indication: TYPE 2 DIABETES MELLITUS
     Dosage: UNK UNK, BID
     Route: 065
  2. METFORMIN [Concomitant]
     Active Substance: METFORMIN HYDROCHLORIDE
     Dosage: UNK
  3. HELICID                            /00661201/ [Concomitant]
     Dosage: UNK
  4. SYMBICORD [Concomitant]
     Active Substance: BUDESONIDE\FORMOTEROL
     Dosage: UNK
  5. VIPDOMET [Suspect]
     Active Substance: ALOGLIPTIN BENZOATE\METFORMIN HYDROCHLORIDE
     Indication: TYPE 2 DIABETES MELLITUS
     Dosage: 12.5/1000 MG
     Route: 048
     Dates: start: 201611, end: 201703
  6. RAWEL [Concomitant]
     Dosage: UNK
  7. EUPHYLLINE                         /00003701/ [Concomitant]
     Active Substance: AMINOPHYLLINE
     Dosage: UNK
  8. VIPIDIA [Suspect]
     Active Substance: ALOGLIPTIN BENZOATE
     Indication: TYPE 2 DIABETES MELLITUS
     Dosage: UNK
     Route: 048
     Dates: start: 2015, end: 201611

REACTIONS (1)
  - Pemphigoid [Recovering/Resolving]

NARRATIVE: CASE EVENT DATE: 2015
